FAERS Safety Report 19350449 (Version 1)
Quarter: 2021Q2

REPORT INFORMATION
  Report Type: Spontaneous
  Country: US (occurrence: US)
  Receive Date: 20210601
  Receipt Date: 20210601
  Transmission Date: 20210717
  Serious: Yes (Other)
  Sender: FDA-Public Use
  Company Number: None

PATIENT
  Age: 35 Year
  Sex: Female
  Weight: 94.5 kg

DRUGS (2)
  1. VITAMINS [Concomitant]
     Active Substance: VITAMINS
  2. HYDROCORTISONE. [Suspect]
     Active Substance: HYDROCORTISONE
     Indication: DRUG THERAPY
     Dosage: ?          QUANTITY:1 1OZ;?
     Route: 061

REACTIONS (2)
  - Hypersensitivity [None]
  - Product packaging issue [None]

NARRATIVE: CASE EVENT DATE: 20210527
